FAERS Safety Report 23210240 (Version 2)
Quarter: 2024Q1

REPORT INFORMATION
  Report Type: Spontaneous
  Country: US (occurrence: US)
  Receive Date: 20231121
  Receipt Date: 20240307
  Transmission Date: 20240410
  Serious: Yes (Other)
  Sender: FDA-Public Use
  Company Number: US-ASTELLAS-2023US033613

PATIENT
  Age: 48 Year
  Sex: Female

DRUGS (2)
  1. VEOZAH [Suspect]
     Active Substance: FEZOLINETANT
     Indication: Menopausal symptoms
     Route: 048
  2. VEOZAH [Suspect]
     Active Substance: FEZOLINETANT
     Indication: Night sweats

REACTIONS (3)
  - Blood bilirubin increased [Recovering/Resolving]
  - Aspartate aminotransferase increased [Recovering/Resolving]
  - Alanine aminotransferase increased [Recovering/Resolving]
